FAERS Safety Report 9109161 (Version 1)
Quarter: 2013Q1

REPORT INFORMATION
  Report Type: Spontaneous
  Country: US (occurrence: US)
  Receive Date: 20130222
  Receipt Date: 20130222
  Transmission Date: 20140127
  Serious: No
  Sender: FDA-Public Use
  Company Number: US-TEVA-387542USA

PATIENT
  Sex: Female
  Weight: 65.38 kg

DRUGS (3)
  1. PROAIR HFA [Suspect]
  2. ADVAIR [Concomitant]
  3. SPIRIVA [Concomitant]

REACTIONS (1)
  - Dysgeusia [Recovered/Resolved]
